FAERS Safety Report 6597767-3 (Version None)
Quarter: 2010Q1

REPORT INFORMATION
  Report Type: 
  Country: None (occurrence: None)
  Receive Date: 20100223
  Receipt Date: 20100217
  Transmission Date: 20100710
  Serious: Yes (Death)
  Sender: FDA-Public Use
  Company Number: US-MERCK-1002USA02843

PATIENT
  Age: 54 Year
  Sex: Female

DRUGS (2)
  1. ISENTRESS [Suspect]
     Indication: HIV INFECTION
     Route: 048
  2. BACTRIM [Concomitant]
     Route: 065

REACTIONS (1)
  - BLOOD POTASSIUM INCREASED [None]
